FAERS Safety Report 20855599 (Version 1)
Quarter: 2022Q2

REPORT INFORMATION
  Report Type: Spontaneous
  Country: NL (occurrence: NL)
  Receive Date: 20220520
  Receipt Date: 20220520
  Transmission Date: 20220721
  Serious: Yes (Death)
  Sender: FDA-Public Use
  Company Number: None

PATIENT
  Age: 84 Year
  Sex: Male
  Weight: 68 kg

DRUGS (20)
  1. PHENPROCOUMON [Suspect]
     Active Substance: PHENPROCOUMON
     Dosage: UNKNOWN , ADDITIONAL INFO : VIT K 1 MG TABLET = PHYTOMENADIONE 1 MG GIVEN
     Dates: start: 2011, end: 20211204
  2. PREDNISOLONE [Suspect]
     Active Substance: PREDNISOLONE
     Indication: Rheumatoid arthritis
     Dosage: PREDNISOLON TABLET 30MG / BRAND NAME NOT SPECIFIED, UNKNOWN
     Dates: start: 20211202
  3. FOLIC ACID [Concomitant]
     Active Substance: FOLIC ACID
     Indication: Folate deficiency
     Dosage: UNKNOWN
     Dates: start: 2021, end: 2021
  4. CHLORHEXIDINE W/LIDOCAINE [Concomitant]
     Dosage: UNKNOWN, STRENGTH : 20/0.5MG/G
     Dates: start: 20211130, end: 2021
  5. PREDNISOLONE [Concomitant]
     Active Substance: PREDNISOLONE
     Dosage: UNKNOWN
     Dates: start: 20211104, end: 20211202
  6. LEVOMENTHOL [Concomitant]
     Active Substance: LEVOMENTHOL
     Dosage: UNKNOWN , LEVOMENTHOL GEL 10MG/G / LEVOMENTHOLGEL 1% BUFA
     Dates: start: 20210921, end: 202112
  7. MELATONIN [Concomitant]
     Active Substance: MELATONIN
     Dosage: UNKNOWN , MELATONINE TABLET MGA
     Dates: start: 20210421, end: 202112
  8. PERINDOPRIL (ERBUMINE) [Concomitant]
     Dosage: UNKNOWN
     Dates: start: 2021, end: 2021
  9. FUROSEMIDE [Concomitant]
     Active Substance: FUROSEMIDE
     Dosage: UNKNOWN
     Dates: start: 2021, end: 2021
  10. PANTOPRAZOLE SODIUM [Concomitant]
     Active Substance: PANTOPRAZOLE SODIUM
     Dosage: UNKNOWN, PANTOPRAZOL TABLET MSR, / PANTOPRAZOL ARX
     Dates: start: 2021, end: 2021
  11. OXYCODONE [Concomitant]
     Active Substance: OXYCODONE
     Indication: Rheumatoid arthritis
     Dosage: UNKNOWN
     Dates: start: 20211129, end: 20211204
  12. OXYCODONE [Concomitant]
     Active Substance: OXYCODONE
     Dosage: UNKNOWN , OXYCODON TABLET MGA
     Dates: start: 20210421, end: 20211204
  13. CHOLECALCIFEROL [Concomitant]
     Active Substance: CHOLECALCIFEROL
     Dosage: UNKNOWN
     Dates: start: 2021, end: 2021
  14. METOPROLOL [Concomitant]
     Active Substance: METOPROLOL
     Dosage: UNKNOWN
     Dates: start: 2021, end: 2021
  15. CINACALCET [Concomitant]
     Active Substance: CINACALCET
     Dosage: UNKNOWN
     Dates: start: 2021, end: 2021
  16. ACETAMINOPHEN [Concomitant]
     Active Substance: ACETAMINOPHEN
     Indication: Rheumatoid arthritis
     Dosage: UNKNOWN
     Dates: start: 20210421, end: 202112
  17. CICLOPIROX [Concomitant]
     Active Substance: CICLOPIROX
     Dosage: UNKNOWN
     Dates: start: 2021, end: 20211203
  18. CIPROFLOXACIN [Concomitant]
     Active Substance: CIPROFLOXACIN
     Indication: Urinary tract infection
     Dosage: UNKNOWN
     Dates: start: 20211129, end: 2021
  19. METHOTREXATE [Concomitant]
     Active Substance: METHOTREXATE
     Dosage: UNKNOWN
     Dates: start: 20211021, end: 2021
  20. MOVICOLON [Concomitant]
     Active Substance: POLYETHYLENE GLYCOL 3350\POTASSIUM CHLORIDE\SODIUM BICARBONATE\SODIUM CHLORIDE
     Dosage: UNKNOWN , DRINK IN SACHET , MACROGOL/ZOUTEN DRANK / MOVICOLON UNIDOSE DRANK IN SACHET
     Dates: start: 2021, end: 2021

REACTIONS (1)
  - Rectal haemorrhage [Fatal]

NARRATIVE: CASE EVENT DATE: 20211204
